FAERS Safety Report 23185041 (Version 1)
Quarter: 2023Q4

REPORT INFORMATION
  Report Type: Spontaneous
  Country: IE (occurrence: IE)
  Receive Date: 20231115
  Receipt Date: 20231115
  Transmission Date: 20240110
  Serious: Yes (Other)
  Sender: FDA-Public Use
  Company Number: IE-NOVITIUMPHARMA-2023IENVP01945

PATIENT
  Sex: Male

DRUGS (7)
  1. DEXAMETHASONE [Suspect]
     Active Substance: DEXAMETHASONE
     Indication: Iris adhesions
     Route: 057
  2. Neomycin/polymixin-B/dexamethasone [Concomitant]
     Indication: Conjunctivitis
     Route: 061
  3. PREDNISOLONE ACETATE [Concomitant]
     Active Substance: PREDNISOLONE ACETATE
     Indication: Iridocyclitis
     Route: 061
  4. CYCLOPENTOLATE [Concomitant]
     Active Substance: CYCLOPENTOLATE
     Indication: Iridocyclitis
  5. BRINZOLAMIDE\TIMOLOL [Concomitant]
     Active Substance: BRINZOLAMIDE\TIMOLOL
     Indication: Iridocyclitis
  6. CHLORAMPHENICOL [Concomitant]
     Active Substance: CHLORAMPHENICOL
     Indication: Iridocyclitis
  7. Atropine/epinephrine/procaine [Concomitant]
     Indication: Product used for unknown indication

REACTIONS (6)
  - Infective scleritis [Unknown]
  - Hyphaema [Unknown]
  - Scleromalacia [Unknown]
  - Cataract [Unknown]
  - Strabismus [Unknown]
  - Iris bombe [Unknown]
